FAERS Safety Report 16568288 (Version 1)
Quarter: 2019Q3

REPORT INFORMATION
  Report Type: Spontaneous
  Country: GB (occurrence: GB)
  Receive Date: 20190712
  Receipt Date: 20190712
  Transmission Date: 20191004
  Serious: Yes (Other)
  Sender: FDA-Public Use
  Company Number: GB-ASCEND THERAPEUTICS-2070748

PATIENT
  Age: 37 Year
  Sex: Female

DRUGS (4)
  1. ESTROGEL [Suspect]
     Active Substance: ESTRADIOL
     Route: 048
  2. PROGESTERONE. [Concomitant]
     Active Substance: PROGESTERONE
     Route: 067
  3. LEVOTHYROXINE. [Concomitant]
     Active Substance: LEVOTHYROXINE
  4. NIFEDIPINE. [Suspect]
     Active Substance: NIFEDIPINE

REACTIONS (7)
  - Postpartum haemorrhage [Unknown]
  - Premature delivery [Unknown]
  - Uterine haemorrhage [Unknown]
  - Product use in unapproved indication [Unknown]
  - Maternal exposure during pregnancy [Unknown]
  - Off label use [Unknown]
  - Contraindicated product administered [Unknown]
